FAERS Safety Report 9721915 (Version 1)
Quarter: 2013Q4

REPORT INFORMATION
  Report Type: Spontaneous
  Country: US (occurrence: US)
  Receive Date: 20131202
  Receipt Date: 20131202
  Transmission Date: 20140711
  Serious: No
  Sender: FDA-Public Use
  Company Number: US-009507513-1311USA009478

PATIENT
  Sex: Female

DRUGS (2)
  1. NASONEX [Suspect]
     Indication: HYPERSENSITIVITY
     Dosage: 1-2 SPRAYS IN EACH NOSTRIL ONCE A DAY
     Route: 045
     Dates: start: 200311
  2. NASONEX [Suspect]
     Indication: ASTHMA

REACTIONS (3)
  - Sinus disorder [Not Recovered/Not Resolved]
  - Drug dose omission [Unknown]
  - Product quality issue [Unknown]
